FAERS Safety Report 8979228 (Version 1)
Quarter: 2012Q4

REPORT INFORMATION
  Report Type: 
  Country: AT (occurrence: AT)
  Receive Date: 20121221
  Receipt Date: 20121221
  Transmission Date: 20130627
  Serious: Yes (Hospitalization)
  Sender: FDA-Public Use
  Company Number: AT-GLAXOSMITHKLINE-B0854275A

PATIENT
  Age: 33 Year
  Sex: Female

DRUGS (2)
  1. WELLBUTRIN [Suspect]
     Indication: PRODUCT USED FOR UNKNOWN INDICATION
     Dosage: 150MG per day
     Dates: start: 20120911
  2. XANOR [Concomitant]

REACTIONS (3)
  - Renal failure acute [Unknown]
  - Transaminases increased [Unknown]
  - Hepatotoxicity [Unknown]
